FAERS Safety Report 15461533 (Version 1)
Quarter: 2018Q4

REPORT INFORMATION
  Report Type: Report from Study
  Country: BR (occurrence: BR)
  Receive Date: 20181003
  Receipt Date: 20181003
  Transmission Date: 20190204
  Serious: Yes (Hospitalization, Other)
  Sender: FDA-Public Use
  Company Number: BR-SHIRE-BR201836371

PATIENT
  Age: 2 Year
  Sex: Male

DRUGS (3)
  1. COAGULATION FACTOR VIII(RECOMBINANT) [Suspect]
     Active Substance: ANTIHEMOPHILIC FACTOR, HUMAN RECOMBINANT
     Dosage: 750 IU, 3X A WEEK
     Route: 065
  2. COAGULATION FACTOR VIII(RECOMBINANT) [Suspect]
     Active Substance: ANTIHEMOPHILIC FACTOR, HUMAN RECOMBINANT
     Indication: PRODUCT USED FOR UNKNOWN INDICATION
     Dosage: 250 IU, UNK
     Route: 065
  3. COAGULATION FACTOR VIII(RECOMBINANT) [Suspect]
     Active Substance: ANTIHEMOPHILIC FACTOR, HUMAN RECOMBINANT
     Dosage: 500 IU, 3X A WEEK
     Route: 065

REACTIONS (4)
  - Haemorrhage [Unknown]
  - Haematoma [Unknown]
  - Haemarthrosis [Unknown]
  - Anti factor VIII antibody increased [Unknown]

NARRATIVE: CASE EVENT DATE: 20170925
